FAERS Safety Report 15341183 (Version 1)
Quarter: 2018Q3

REPORT INFORMATION
  Report Type: Spontaneous
  Country: DK (occurrence: DK)
  Receive Date: 20180831
  Receipt Date: 20180831
  Transmission Date: 20181010
  Serious: Yes (Hospitalization)
  Sender: FDA-Public Use
  Company Number: PHHY2018DK085984

PATIENT
  Age: 36 Year
  Sex: Female

DRUGS (1)
  1. DICILLIN [Suspect]
     Active Substance: DICLOXACILLIN SODIUM
     Indication: MASTITIS
     Dosage: 3000 MG, QD
     Route: 048
     Dates: start: 20180524, end: 20180531

REACTIONS (2)
  - Throat irritation [Recovered/Resolved]
  - Rash generalised [Recovered/Resolved]

NARRATIVE: CASE EVENT DATE: 201806
